FAERS Safety Report 22228015 (Version 1)
Quarter: 2023Q2

REPORT INFORMATION
  Report Type: Spontaneous
  Country: US (occurrence: US)
  Receive Date: 20230419
  Receipt Date: 20230419
  Transmission Date: 20230722
  Serious: No
  Sender: FDA-Public Use
  Company Number: US-TORRENT-00012610

PATIENT
  Sex: Female
  Weight: 58 kg

DRUGS (3)
  1. ESCITALOPRAM [Suspect]
     Active Substance: ESCITALOPRAM OXALATE
     Indication: Anxiety
     Dosage: 5 MG ONE TABLET A DAY ORALLY AT BEDTIME MOSTLY AROUND 3 MONTHS AGO
     Route: 048
  2. CEPHALEXIN [Concomitant]
     Active Substance: CEPHALEXIN
     Indication: Localised infection
     Dosage: 4 TIMES A DAY
     Route: 065
  3. OMEPRAZOLE [Concomitant]
     Active Substance: OMEPRAZOLE
     Indication: Hyperchlorhydria
     Dosage: UNKNOWN
     Route: 065

REACTIONS (7)
  - Limb discomfort [Unknown]
  - Dyspepsia [Unknown]
  - Fatigue [Unknown]
  - Chest discomfort [Unknown]
  - Oesophageal disorder [Unknown]
  - Insomnia [Unknown]
  - Dysstasia [Unknown]
